FAERS Safety Report 5331360-5 (Version None)
Quarter: 2007Q2

REPORT INFORMATION
  Report Type: 
  Country: None (occurrence: None)
  Receive Date: 20070522
  Receipt Date: 20070514
  Transmission Date: 20071010
  Serious: Yes (Other)
  Sender: FDA-Public Use
  Company Number: DE-ELI_LILLY_AND_COMPANY-DE200705003269

PATIENT
  Age: 65 Year
  Sex: Female

DRUGS (4)
  1. FORTEO [Suspect]
     Indication: OSTEOPOROSIS
     Route: 058
     Dates: start: 20070511, end: 20070511
  2. ANTIHYPERTENSIVES [Concomitant]
  3. VITAMINS NOS [Concomitant]
  4. GINKGO [Concomitant]

REACTIONS (1)
  - BONE PAIN [None]
